FAERS Safety Report 16453754 (Version 3)
Quarter: 2019Q3

REPORT INFORMATION
  Report Type: Spontaneous
  Country: DE (occurrence: DE)
  Receive Date: 20190619
  Receipt Date: 20190906
  Transmission Date: 20191004
  Serious: Yes (Hospitalization, Disabling, Other)
  Sender: FDA-Public Use
  Company Number: DE-JNJFOC-20190618817

PATIENT
  Age: 68 Year
  Sex: Female
  Weight: 90 kg

DRUGS (10)
  1. LOSARTAN. [Concomitant]
     Active Substance: LOSARTAN
     Dosage: 50 MG, BID
     Dates: start: 201810
  2. RIVAROXABAN [Suspect]
     Active Substance: RIVAROXABAN
     Indication: ATRIAL FIBRILLATION
     Dosage: 20 MG, OM
     Route: 048
     Dates: start: 20180705, end: 20181016
  3. KALINOR-BRAUSETABLETTEN [Concomitant]
     Active Substance: POTASSIUM CARBONATE\POTASSIUM CITRATE
     Dosage: 1 DF, QD
     Route: 048
     Dates: start: 20181030, end: 20181101
  4. LOSARTAN. [Concomitant]
     Active Substance: LOSARTAN
     Dosage: 50 MG, OM
  5. LIMPTAR [Concomitant]
     Active Substance: AMINOPHYLLINE\QUININE SULFATE
     Dosage: 165 MG, BID
  6. ENOXAPARIN SODIUM. [Concomitant]
     Active Substance: ENOXAPARIN SODIUM
     Indication: PRODUCT USED FOR UNKNOWN INDICATION
     Dosage: 0.2 ML, QD
     Route: 058
  7. ESCITALOPRAM [Concomitant]
     Active Substance: ESCITALOPRAM OXALATE
     Dosage: 10 MG, OM
  8. L-THYROX JOD HEXAL [Concomitant]
     Dosage: 1 DF, OM
  9. FENTANYL. [Concomitant]
     Active Substance: FENTANYL
     Dosage: 100 MG/H, Q72HR
  10. LIMPTAR [Concomitant]
     Active Substance: AMINOPHYLLINE\QUININE SULFATE
     Dosage: 165 MG, QD

REACTIONS (5)
  - Hypokalaemia [Unknown]
  - Partial seizures [Unknown]
  - Basal ganglia haemorrhage [Recovered/Resolved]
  - Seizure [Unknown]
  - Epilepsy [Unknown]

NARRATIVE: CASE EVENT DATE: 2018
